FAERS Safety Report 7956335 (Version 4)
Quarter: 2012Q4

REPORT INFORMATION
  Report Type: 
  Country: AR (occurrence: AR)
  Receive Date: 20110524
  Receipt Date: 20121004
  Transmission Date: 20130627
  Serious: Yes (Other)
  Sender: FDA-Public Use
  Company Number: AR-AMGEN-ARGSP2011025647

PATIENT
  Age: 58 Year
  Sex: Female
  Weight: 68 kg

DRUGS (5)
  1. ENBREL [Suspect]
     Indication: RHEUMATOID ARTHRITIS
     Dosage: 50 mg, weekly
     Route: 058
     Dates: start: 20101105, end: 20110203
  2. METHOTREXATE SODIUM [Concomitant]
     Dosage: 15 mg, 1x/day
  3. PAROXETINE [Concomitant]
     Dosage: 20 mg, 1x/day
  4. MELOXICAM [Concomitant]
     Dosage: UNK
  5. MEPREDNISONE [Concomitant]
     Dosage: UNK

REACTIONS (1)
  - Myocardial infarction [Recovered/Resolved]
